FAERS Safety Report 15490052 (Version 1)
Quarter: 2018Q4

REPORT INFORMATION
  Report Type: Spontaneous
  Country: FR (occurrence: FR)
  Receive Date: 20181011
  Receipt Date: 20181011
  Transmission Date: 20190205
  Serious: Yes (Hospitalization, Disabling)
  Sender: FDA-Public Use
  Company Number: FR-CELGENEUS-FRA-20181001183

PATIENT
  Age: 70 Year
  Sex: Male
  Weight: 77 kg

DRUGS (2)
  1. POMALIDOMIDE [Suspect]
     Active Substance: POMALIDOMIDE
     Indication: PLASMA CELL MYELOMA
     Dosage: 1 DOSAGE FORMS
     Route: 048
     Dates: start: 20180520, end: 20180707
  2. NEOFORDEX [Concomitant]
     Active Substance: DEXAMETHASONE ACETATE
     Indication: PLASMA CELL MYELOMA
     Dosage: 1 DOSAGE FORMS
     Route: 048
     Dates: start: 20180520, end: 20180707

REACTIONS (2)
  - Guillain-Barre syndrome [Recovering/Resolving]
  - Dysaesthesia [Recovering/Resolving]

NARRATIVE: CASE EVENT DATE: 201806
